FAERS Safety Report 8715706 (Version 2)
Quarter: 2013Q2

REPORT INFORMATION
  Report Type: Spontaneous
  Country: US (occurrence: US)
  Receive Date: 20120809
  Receipt Date: 20130605
  Transmission Date: 20140414
  Serious: Yes (Hospitalization, Other)
  Sender: FDA-Public Use
  Company Number: US-PFIZER INC-2012191336

PATIENT
  Age: 71 Year
  Sex: Female
  Weight: 95.24 kg

DRUGS (8)
  1. SUTENT [Suspect]
     Indication: RENAL CELL CARCINOMA STAGE IV
     Dosage: 37.5 MG, 1X/DAY
     Route: 048
     Dates: start: 20120630, end: 20120713
  2. COREG [Concomitant]
     Indication: HYPERTENSION
     Dosage: 25 MG, 2X/DAY
  3. INSULIN [Concomitant]
     Indication: DIABETES MELLITUS
     Dosage: UNK, 2X/DAY
  4. LEVOXYL [Concomitant]
     Indication: HYPERTHYROIDISM
     Dosage: 75 UG, 1X/DAY
  5. ALLOPURINOL [Concomitant]
     Dosage: UNK
  6. WARFARIN [Concomitant]
     Dosage: UNK
     Dates: end: 201207
  7. HUMALOG [Concomitant]
     Indication: DIABETES MELLITUS
     Dosage: UNK
  8. LANTUS [Concomitant]
     Indication: DIABETES MELLITUS
     Dosage: UNK

REACTIONS (15)
  - Vein disorder [Not Recovered/Not Resolved]
  - Haematotoxicity [Not Recovered/Not Resolved]
  - Heart injury [Not Recovered/Not Resolved]
  - Ocular icterus [Unknown]
  - Swelling [Unknown]
  - Jaundice [Not Recovered/Not Resolved]
  - Myocardial infarction [Unknown]
  - Chills [Not Recovered/Not Resolved]
  - Ejection fraction decreased [Not Recovered/Not Resolved]
  - Vomiting [Not Recovered/Not Resolved]
  - Body temperature increased [Not Recovered/Not Resolved]
  - Yellow skin [Unknown]
  - Chills [Unknown]
  - Platelet count decreased [Not Recovered/Not Resolved]
  - Hepatic enzyme increased [Not Recovered/Not Resolved]
